FAERS Safety Report 6782646-9 (Version None)
Quarter: 2010Q2

REPORT INFORMATION
  Report Type: 
  Country: None (occurrence: None)
  Receive Date: 20100621
  Receipt Date: 20100607
  Transmission Date: 20101027
  Serious: Yes (Other)
  Sender: FDA-Public Use
  Company Number: PHHY2010PK36515

PATIENT
  Age: 42 Year
  Sex: Male

DRUGS (8)
  1. CYCLOSPORINE [Suspect]
     Indication: STEM CELL TRANSPLANT
  2. CYCLOSPORINE [Suspect]
     Indication: GRAFT VERSUS HOST DISEASE
  3. MYCOPHENOLATE MOFETIL [Suspect]
     Indication: STEM CELL TRANSPLANT
  4. MYCOPHENOLATE MOFETIL [Suspect]
     Indication: GRAFT VERSUS HOST DISEASE
  5. CAMPATH [Concomitant]
     Indication: STEM CELL TRANSPLANT
     Dosage: 20 MG, DAILY
  6. FLUDARABINE [Concomitant]
     Indication: STEM CELL TRANSPLANT
     Dosage: 30 MG/M2, UNK
  7. MELPHALAN HYDROCHLORIDE [Concomitant]
     Indication: STEM CELL TRANSPLANT
     Dosage: 140 MG/M2, UNK
  8. NEUPOGEN [Concomitant]
     Indication: STEM CELL TRANSPLANT

REACTIONS (15)
  - ACUTE GRAFT VERSUS HOST DISEASE [None]
  - ACUTE GRAFT VERSUS HOST DISEASE IN LIVER [None]
  - ACUTE GRAFT VERSUS HOST DISEASE IN SKIN [None]
  - BLOOD ALKALINE PHOSPHATASE INCREASED [None]
  - BLOOD LACTATE DEHYDROGENASE INCREASED [None]
  - DIFFUSE LARGE B-CELL LYMPHOMA RECURRENT [None]
  - FEBRILE NEUTROPENIA [None]
  - GLUCOSE TOLERANCE IMPAIRED [None]
  - HYPERBILIRUBINAEMIA [None]
  - INTRAVASCULAR HAEMOLYSIS [None]
  - JAUNDICE [None]
  - MOUTH ULCERATION [None]
  - PYREXIA [None]
  - RED BLOOD CELL SCHISTOCYTES PRESENT [None]
  - RENAL IMPAIRMENT [None]
